FAERS Safety Report 18541716 (Version 3)
Quarter: 2020Q4

REPORT INFORMATION
  Report Type: Report from Study
  Country: BR (occurrence: BR)
  Receive Date: 20201124
  Receipt Date: 20201229
  Transmission Date: 20210114
  Serious: Yes (Death, Other)
  Sender: FDA-Public Use
  Company Number: BR-PFIZER INC-2020458714

PATIENT
  Age: 52 Year
  Sex: Female
  Weight: 79 kg

DRUGS (3)
  1. TAZOCIN [Suspect]
     Active Substance: PIPERACILLIN SODIUM\TAZOBACTAM SODIUM
     Indication: FEBRILE NEUTROPENIA
     Dosage: 4500 MG, EVERY 6 HOURS
     Route: 042
     Dates: start: 20200906, end: 20200920
  2. ARACYTIN [Suspect]
     Active Substance: CYTARABINE
     Indication: ACUTE MYELOID LEUKAEMIA
     Dosage: 370 MG, 24H
     Route: 042
     Dates: start: 20200904, end: 20200911
  3. MYLOTARG [Suspect]
     Active Substance: GEMTUZUMAB OZOGAMICIN
     Indication: ACUTE MYELOID LEUKAEMIA REFRACTORY
     Dosage: 5 MG, 3 DOSES
     Route: 042
     Dates: start: 20200904, end: 20200921

REACTIONS (5)
  - Leukocytosis [Unknown]
  - Pancytopenia [Recovered/Resolved]
  - Enterocolitis [Recovered/Resolved]
  - Neoplasm progression [Fatal]
  - Neutropenia [Unknown]

NARRATIVE: CASE EVENT DATE: 20200914
